FAERS Safety Report 10022226 (Version 4)
Quarter: 2014Q1

REPORT INFORMATION
  Report Type: Spontaneous
  Country: US (occurrence: None)
  Receive Date: 20131217
  Receipt Date: 20140226
  Transmission Date: 20141002
  Serious: Yes (Other)
  Sender: FDA-Public Use
  Company Number: ADR-2013-01253

PATIENT
  Age: 17 Year
  Sex: Female
  Weight: 29.48 kg

DRUGS (1)
  1. LIORESAL [Suspect]
     Indication: MUSCLE SPASTICITY
     Dosage: 650MCG/DAY

REACTIONS (7)
  - Implant site erosion [None]
  - Dystonia [None]
  - Insomnia [None]
  - Device alarm issue [None]
  - Toxicity to various agents [None]
  - Underdose [None]
  - Therapeutic response decreased [None]
